FAERS Safety Report 12308862 (Version 1)
Quarter: 2016Q2

REPORT INFORMATION
  Report Type: Other
  Country: US (occurrence: US)
  Receive Date: 20160427
  Receipt Date: 20160427
  Transmission Date: 20160815
  Serious: Yes (Hospitalization, Other)
  Sender: FDA-Public Use
  Company Number: US-SHIRE-US201604881

PATIENT
  Age: 41 Year
  Sex: Female

DRUGS (1)
  1. LIALDA [Suspect]
     Active Substance: MESALAMINE
     Indication: PRODUCT USED FOR UNKNOWN INDICATION
     Dosage: 1.2 G, 1X/DAY:QD
     Route: 048
     Dates: end: 201602

REACTIONS (6)
  - Blood potassium decreased [Unknown]
  - White blood cell count increased [Unknown]
  - Gastrointestinal inflammation [Recovering/Resolving]
  - Clostridium difficile infection [Recovering/Resolving]
  - Rectal haemorrhage [Recovering/Resolving]
  - Drug dose omission [Unknown]

NARRATIVE: CASE EVENT DATE: 2016
